FAERS Safety Report 5054448-5 (Version None)
Quarter: 2006Q2

REPORT INFORMATION
  Report Type: 
  Country: None (occurrence: None)
  Receive Date: 20060616
  Receipt Date: 20060520
  Transmission Date: 20061013
  Serious: Yes (Hospitalization)
  Sender: FDA-Public Use
  Company Number: 220151

PATIENT
  Age: 81 Year
  Sex: Male

DRUGS (3)
  1. AVASTIN [Suspect]
     Indication: COLORECTAL CANCER METASTATIC
     Dosage: 1/WEEK
     Dates: start: 20051001, end: 20051101
  2. XELODA [Concomitant]
  3. ISOSORBIDE DINITRATE [Concomitant]

REACTIONS (1)
  - INTESTINAL ISCHAEMIA [None]
